FAERS Safety Report 6390919-7 (Version None)
Quarter: 2009Q4

REPORT INFORMATION
  Report Type: 
  Country: None (occurrence: None)
  Receive Date: 20091003
  Receipt Date: 20090922
  Transmission Date: 20100525
  Serious: Yes (Other)
  Sender: FDA-Public Use
  Company Number: 2009AL006180

PATIENT
  Age: 52 Year
  Sex: Female

DRUGS (3)
  1. AMANTADINE HCL [Suspect]
     Indication: PARKINSONISM
     Dosage: 250 MG;QD;PO
     Route: 048
     Dates: start: 20000101, end: 20070101
  2. CLONAZEPAM [Suspect]
     Dosage: 1 MG;QID;
  3. ALPRAZOLAM [Suspect]
     Dosage: 0.25 MG

REACTIONS (5)
  - CORNEAL DISORDER [None]
  - CORNEAL ENDOTHELIITIS [None]
  - CORNEAL OEDEMA [None]
  - HERPES SIMPLEX OPHTHALMIC [None]
  - KERATITIS [None]
